FAERS Safety Report 18415951 (Version 1)
Quarter: 2020Q4

REPORT INFORMATION
  Report Type: Spontaneous
  Country: US (occurrence: US)
  Receive Date: 20201022
  Receipt Date: 20201022
  Transmission Date: 20210114
  Serious: Yes (Disabling, Other)
  Sender: FDA-Public Use
  Company Number: US-PURDUE-USA-2020-0170555

PATIENT
  Sex: Male

DRUGS (16)
  1. OXYCONTIN [Suspect]
     Active Substance: OXYCODONE HYDROCHLORIDE
     Dosage: 30 MG, BID
     Route: 048
     Dates: start: 20091201, end: 20100119
  2. OXYCODONE HCL TABLETS (RHODES 91-490) [Suspect]
     Active Substance: OXYCODONE HYDROCHLORIDE
     Indication: PAIN MANAGEMENT
     Dosage: L120 TABLET, DAILY
     Route: 048
  3. FENTANYL. [Suspect]
     Active Substance: FENTANYL
     Indication: PAIN MANAGEMENT
     Dosage: 25 MCG, Q72H
     Route: 062
  4. OXYCONTIN [Suspect]
     Active Substance: OXYCODONE HYDROCHLORIDE
     Dosage: 80 MG, BID
     Route: 048
     Dates: start: 20110208
  5. AVINZA [Suspect]
     Active Substance: MORPHINE SULFATE
     Indication: PAIN MANAGEMENT
     Dosage: 30 MG, DAILY
     Route: 048
  6. ROXICODONE [Suspect]
     Active Substance: OXYCODONE HYDROCHLORIDE
     Dosage: 15 MG, QID PRN
     Route: 048
     Dates: start: 20091201, end: 20100830
  7. OXYIR [Suspect]
     Active Substance: OXYCODONE HYDROCHLORIDE
     Indication: PAIN MANAGEMENT
     Dosage: 5 MG, QID
     Route: 065
     Dates: start: 20090623
  8. ROXICODONE [Suspect]
     Active Substance: OXYCODONE HYDROCHLORIDE
     Indication: PAIN MANAGEMENT
     Dosage: 15 MG, 5/DAY
     Route: 048
     Dates: start: 20090810, end: 20091201
  9. ROXICODONE [Suspect]
     Active Substance: OXYCODONE HYDROCHLORIDE
     Dosage: 30 MG, QID PRN
     Route: 048
     Dates: start: 20101021
  10. OXYCONTIN [Suspect]
     Active Substance: OXYCODONE HYDROCHLORIDE
     Dosage: 40 MG, TID
     Route: 048
     Dates: start: 20100512
  11. HYDROCODONE BITARTRATE (SIMILAR TO NDA 206627) [Suspect]
     Active Substance: HYDROCODONE BITARTRATE
     Indication: BREAKTHROUGH PAIN
     Dosage: UNKNOWN
     Route: 048
  12. NORCO [Suspect]
     Active Substance: ACETAMINOPHEN\HYDROCODONE BITARTRATE
     Indication: STENOSIS
     Dosage: 10/325 MG, TID PRN
     Route: 048
     Dates: start: 200511, end: 20090623
  13. ROXICODONE [Suspect]
     Active Substance: OXYCODONE HYDROCHLORIDE
     Dosage: 30 MG, TID PRN
     Route: 048
     Dates: start: 20100830, end: 20101021
  14. HYDROCODONE BITARTRATE AND ACETAMINOPHEN [Suspect]
     Active Substance: ACETAMINOPHEN\HYDROCODONE BITARTRATE
     Indication: STENOSIS
     Dosage: UNKNOWN
     Route: 048
  15. OXYCONTIN [Suspect]
     Active Substance: OXYCODONE HYDROCHLORIDE
     Dosage: 20 MG, TID
     Route: 048
     Dates: start: 20100119, end: 20100512
  16. OXYCONTIN [Suspect]
     Active Substance: OXYCODONE HYDROCHLORIDE
     Indication: PAIN MANAGEMENT
     Dosage: 80 MG, DAILY
     Route: 048

REACTIONS (11)
  - Drug dependence [Unknown]
  - Emotional distress [Unknown]
  - Drug withdrawal syndrome [Unknown]
  - Drug tolerance [Unknown]
  - Breakthrough pain [Unknown]
  - Drug abuse [Unknown]
  - Thyroid disorder [Unknown]
  - Hypothyroidism [Unknown]
  - Loss of personal independence in daily activities [Unknown]
  - Impaired work ability [Unknown]
  - Suicidal ideation [Unknown]
